FAERS Safety Report 4312545-3 (Version None)
Quarter: 2004Q1

REPORT INFORMATION
  Report Type: 
  Country: None (occurrence: None)
  Receive Date: 20040302
  Receipt Date: 20031110
  Transmission Date: 20041129
  Serious: No
  Sender: FDA-Public Use
  Company Number: 701236

PATIENT
  Age: 20 Year
  Sex: Male

DRUGS (1)
  1. AMEVIVE [Suspect]
     Indication: PSORIASIS
     Dosage: 15 MG QW IM
     Route: 030
     Dates: start: 20030930, end: 20031001

REACTIONS (3)
  - COUGH [None]
  - NASOPHARYNGITIS [None]
  - RASH MACULAR [None]
